FAERS Safety Report 22589170 (Version 1)
Quarter: 2023Q2

REPORT INFORMATION
  Report Type: Spontaneous
  Country: US (occurrence: None)
  Receive Date: 20230609
  Receipt Date: 20230609
  Transmission Date: 20230721
  Serious: No
  Sender: FDA-Public Use
  Company Number: None

PATIENT
  Sex: Female

DRUGS (1)
  1. CAPECITABINE [Suspect]
     Active Substance: CAPECITABINE
     Indication: Breast cancer female
     Dosage: OTHER QUANTITY : 4T AM 3T PM ;?FREQUENCY : DAILY;?OTHER ROUTE : PO 14D ON 7D OFF;?
     Route: 050

REACTIONS (1)
  - Hospitalisation [None]
